FAERS Safety Report 9210819 (Version 1)
Quarter: 2013Q2

REPORT INFORMATION
  Report Type: Spontaneous
  Country: NL (occurrence: NL)
  Receive Date: 20130404
  Receipt Date: 20130404
  Transmission Date: 20140414
  Serious: Yes (Other)
  Sender: FDA-Public Use
  Company Number: NL-US-EMD SERONO, INC.-7045456

PATIENT
  Age: 42 Year
  Sex: Female
  Weight: 57 kg

DRUGS (8)
  1. REBIF [Suspect]
     Indication: MULTIPLE SCLEROSIS
     Route: 058
     Dates: start: 20101117, end: 201209
  2. DIAZEPAM RECTIOLE [Concomitant]
     Indication: EPILEPSY
     Route: 054
     Dates: start: 2009
  3. GABAPENTINE [Concomitant]
     Indication: PAIN
     Route: 048
  4. LEVETIRACETAM [Concomitant]
     Indication: EPILEPSY
     Route: 048
     Dates: start: 2009
  5. LEVOTHYROXINE [Concomitant]
     Indication: THYROID DISORDER
     Route: 048
     Dates: start: 2000
  6. MODAFINIL [Concomitant]
     Indication: DYSLIPIDAEMIA
     Route: 048
     Dates: start: 2009
  7. PARACETAMOL [Concomitant]
     Indication: INFLUENZA LIKE ILLNESS
     Route: 048
     Dates: start: 20101117
  8. IBUPROFEN [Concomitant]
     Indication: PREMEDICATION

REACTIONS (4)
  - Epilepsy [Unknown]
  - Decreased appetite [Recovered/Resolved]
  - Influenza like illness [Recovered/Resolved]
  - Headache [Recovered/Resolved]
